FAERS Safety Report 10392219 (Version 2)
Quarter: 2014Q3

REPORT INFORMATION
  Report Type: Spontaneous
  Country: JP (occurrence: JP)
  Receive Date: 20140819
  Receipt Date: 20140820
  Transmission Date: 20150326
  Serious: Yes (Hospitalization)
  Sender: FDA-Public Use
  Company Number: JP-ROCHE-1448389

PATIENT
  Age: 23 Year
  Sex: Female

DRUGS (3)
  1. RIVOTRIL [Suspect]
     Active Substance: CLONAZEPAM
     Indication: PRODUCT USED FOR UNKNOWN INDICATION
     Dosage: TAKING VOLUMINOUSLY
     Route: 048
  2. SELENICA-R [Suspect]
     Active Substance: SELENIUM
     Indication: PRODUCT USED FOR UNKNOWN INDICATION
     Dosage: TAKING VOLUMINOUSLY
     Route: 048
  3. MEILAX [Suspect]
     Active Substance: ETHYL LOFLAZEPATE
     Indication: PRODUCT USED FOR UNKNOWN INDICATION
     Dosage: TAKING VOLUMINOUSLY
     Route: 048

REACTIONS (4)
  - Overdose [Unknown]
  - Dizziness [Unknown]
  - Somnolence [Unknown]
  - Hyperammonaemia [Unknown]
